FAERS Safety Report 18513264 (Version 1)
Quarter: 2020Q4

REPORT INFORMATION
  Report Type: Spontaneous
  Country: US (occurrence: US)
  Receive Date: 20201118
  Receipt Date: 20201118
  Transmission Date: 20210114
  Serious: Yes (Hospitalization, Other)
  Sender: FDA-Public Use
  Company Number: US-ALEMBIC PHARMACUETICALS LIMITED-2020SCAL000491

PATIENT

DRUGS (5)
  1. LAMOTRIGINE. [Suspect]
     Active Substance: LAMOTRIGINE
     Indication: PARTIAL SEIZURES
     Dosage: UNK
  2. AMOXICILLIN. [Concomitant]
     Active Substance: AMOXICILLIN
     Indication: PHARYNGITIS
  3. AMOXICILLIN. [Concomitant]
     Active Substance: AMOXICILLIN
     Indication: LYMPHADENOPATHY
     Dosage: UNK
  4. LAMOTRIGINE. [Suspect]
     Active Substance: LAMOTRIGINE
     Indication: EPILEPSY
  5. CARBAMAZEPINE. [Concomitant]
     Active Substance: CARBAMAZEPINE
     Indication: EPILEPSY
     Dosage: SLOWLY TAPERING OFF CARBAMAZEPINE

REACTIONS (24)
  - Fulminant type 1 diabetes mellitus [Recovering/Resolving]
  - Hyperglycaemia [Recovering/Resolving]
  - Drug reaction with eosinophilia and systemic symptoms [Recovering/Resolving]
  - Transaminases increased [Recovering/Resolving]
  - Pneumonia bacterial [Recovering/Resolving]
  - Diabetic ketoacidosis [Recovering/Resolving]
  - Face oedema [Recovering/Resolving]
  - Pyrexia [Recovering/Resolving]
  - Non-alcoholic steatohepatitis [Recovering/Resolving]
  - Blood glucose increased [Recovering/Resolving]
  - Lymphadenopathy [Recovering/Resolving]
  - Rash maculo-papular [Recovering/Resolving]
  - Rash pruritic [Recovering/Resolving]
  - Acute respiratory distress syndrome [Recovering/Resolving]
  - Splenic infarction [Recovering/Resolving]
  - Rash erythematous [Recovering/Resolving]
  - Glycosylated haemoglobin increased [Recovering/Resolving]
  - Hepatic failure [Recovering/Resolving]
  - Rash [Recovering/Resolving]
  - Sepsis [Recovering/Resolving]
  - Hypovolaemic shock [Recovering/Resolving]
  - Diabetes mellitus [Recovering/Resolving]
  - Seizure [Recovering/Resolving]
  - Rash morbilliform [Recovering/Resolving]
